FAERS Safety Report 9711612 (Version 3)
Quarter: 2014Q4

REPORT INFORMATION
  Report Type: Spontaneous
  Country: US (occurrence: US)
  Receive Date: 20131126
  Receipt Date: 20141205
  Transmission Date: 20150529
  Serious: No
  Sender: FDA-Public Use
  Company Number: US-BRISTOL-MYERS SQUIBB COMPANY-18782656

PATIENT
  Age: 72 Year
  Sex: Male
  Weight: 73.92 kg

DRUGS (2)
  1. BYDUREON [Suspect]
     Active Substance: EXENATIDE
     Indication: TYPE 2 DIABETES MELLITUS
     Dosage: LOT#72930,AAA0575?EXP:AUG2013, MAR16,OCT16?INJ?ONGOING?=
     Route: 058
     Dates: start: 20130328
  2. METFORMIN HCL [Suspect]
     Active Substance: METFORMIN HYDROCHLORIDE

REACTIONS (8)
  - Nausea [Recovered/Resolved]
  - Increased appetite [Not Recovered/Not Resolved]
  - Product quality issue [Unknown]
  - Weight decreased [Unknown]
  - Weight increased [Not Recovered/Not Resolved]
  - Decreased appetite [Unknown]
  - Injection site haemorrhage [Unknown]
  - Injection site pain [Unknown]

NARRATIVE: CASE EVENT DATE: 201303
